FAERS Safety Report 9478889 (Version 1)
Quarter: 2013Q3

REPORT INFORMATION
  Report Type: Spontaneous
  Country: AT (occurrence: None)
  Receive Date: 20130822
  Receipt Date: 20130822
  Transmission Date: 20140515
  Serious: Yes (Life-Threatening)
  Sender: FDA-Public Use
  Company Number: 1859279

PATIENT
  Sex: 0

DRUGS (4)
  1. IRINOTECAN HYDROCHLORIDE [Suspect]
     Indication: DUCTAL ADENOCARCINOMA OF PANCREAS
  2. OXALIPLATIN [Suspect]
     Indication: DUCTAL ADENOCARCINOMA OF PANCREAS
  3. FLUOROURACIL [Suspect]
     Indication: DUCTAL ADENOCARCINOMA OF PANCREAS
  4. LEUCOVORIN [Suspect]
     Indication: DUCTAL ADENOCARCINOMA OF PANCREAS

REACTIONS (1)
  - Pulmonary embolism [None]
